FAERS Safety Report 7626921-4 (Version None)
Quarter: 2011Q3

REPORT INFORMATION
  Report Type: 
  Country: None (occurrence: None)
  Receive Date: 20110701
  Receipt Date: 20100512
  Transmission Date: 20111222
  Serious: Yes (Other)
  Sender: FDA-Public Use
  Company Number: 7004727

PATIENT
  Age: 53 Year
  Sex: Female

DRUGS (1)
  1. REBIF [Suspect]
     Dosage: 22 MCG, 3 IN 1 WK, SUBCUTANEOUS, 44 MCG, SUBCUTANEOUS, 22 MCG, SUBCUTANEOUS
     Route: 058
     Dates: start: 20080827

REACTIONS (5)
  - BLOOD COUNT ABNORMAL [None]
  - CATARACT [None]
  - FEELING ABNORMAL [None]
  - UVEITIS [None]
  - INFLUENZA LIKE ILLNESS [None]
